FAERS Safety Report 10789303 (Version 7)
Quarter: 2016Q1

REPORT INFORMATION
  Report Type: Spontaneous
  Country: US (occurrence: US)
  Receive Date: 20150212
  Receipt Date: 20160328
  Transmission Date: 20160525
  Serious: Yes (Hospitalization, Other)
  Sender: FDA-Public Use
  Company Number: US-GLAXOSMITHKLINE-A1090304A

PATIENT
  Age: 60 Year
  Sex: Male

DRUGS (2)
  1. VENTOLIN HFA [Suspect]
     Active Substance: ALBUTEROL SULFATE
     Indication: ASTHMA
     Dosage: UNK UNK, U
     Route: 065
     Dates: start: 2002
  2. ADVAIR DISKUS [Suspect]
     Active Substance: FLUTICASONE PROPIONATE\SALMETEROL XINAFOATE
     Indication: ASTHMA
     Dosage: UNK, U
     Route: 065
     Dates: start: 2000

REACTIONS (10)
  - Monarthritis [Unknown]
  - Pain [Unknown]
  - Foot fracture [Unknown]
  - Hypertension [Unknown]
  - Nerve compression [Recovering/Resolving]
  - Abdominal distension [Unknown]
  - Pancreatitis [Unknown]
  - Wrist surgery [Unknown]
  - Therapeutic response unexpected [Unknown]
  - Joint injury [Recovering/Resolving]

NARRATIVE: CASE EVENT DATE: 201506
